FAERS Safety Report 5026971-0 (Version None)
Quarter: 2006Q2

REPORT INFORMATION
  Report Type: 
  Country: None (occurrence: None)
  Receive Date: 20060609
  Receipt Date: 20060522
  Transmission Date: 20061013
  Serious: Yes (Hospitalization)
  Sender: FDA-Public Use
  Company Number: 2006068055

PATIENT
  Age: 65 Year
  Sex: Female

DRUGS (3)
  1. LIPITOR [Suspect]
     Indication: HYPERCHOLESTEROLAEMIA
     Dosage: 10 MG (1 IN 1 D), ORAL
     Route: 048
     Dates: start: 20060210, end: 20060518
  2. URSO 250 [Suspect]
     Indication: LIVER DISORDER
     Dosage: 300 MG (PER DAY), ORAL
     Route: 048
     Dates: start: 20050415, end: 20060518
  3. MAGNESIUM OXIDE (MAGNESIUM OXIDE) [Suspect]
     Indication: CONSTIPATION
     Dosage: 990 MG (PER DAY), ORAL
     Route: 048
     Dates: start: 20050415, end: 20060518

REACTIONS (2)
  - HYPOAESTHESIA [None]
  - MYOPATHY [None]
